FAERS Safety Report 15633957 (Version 2)
Quarter: 2019Q1

REPORT INFORMATION
  Report Type: Spontaneous
  Country: US (occurrence: US)
  Receive Date: 20181119
  Receipt Date: 20190207
  Transmission Date: 20190417
  Serious: No
  Sender: FDA-Public Use
  Company Number: US-ASTRAZENECA-2018SF40896

PATIENT
  Age: 78 Year
  Sex: Female

DRUGS (1)
  1. FASENRA [Suspect]
     Active Substance: BENRALIZUMAB
     Indication: ASTHMA
     Dosage: 30 MG, EVERY FOUR WEEKS THEN EVERY 8 WEEKS THEREAFTER
     Route: 058
     Dates: start: 20180628

REACTIONS (3)
  - Hyperhidrosis [Unknown]
  - Myalgia [Unknown]
  - Muscle spasms [Unknown]
